FAERS Safety Report 18664893 (Version 3)
Quarter: 2022Q4

REPORT INFORMATION
  Report Type: Report from Study
  Country: DE (occurrence: DE)
  Receive Date: 20201225
  Receipt Date: 20221213
  Transmission Date: 20230113
  Serious: Yes (Hospitalization, Other)
  Sender: FDA-Public Use
  Company Number: DE-SHIRE-DE201912399

PATIENT
  Age: 32 Year
  Sex: Female
  Weight: 49 kg

DRUGS (5)
  1. TEDUGLUTIDE [Suspect]
     Active Substance: TEDUGLUTIDE
     Indication: Short-bowel syndrome
     Dosage: 2.2 MILLIGRAM
     Route: 058
     Dates: start: 20171114
  2. TEDUGLUTIDE [Suspect]
     Active Substance: TEDUGLUTIDE
     Indication: Short-bowel syndrome
     Dosage: 2.2 MILLIGRAM
     Route: 058
     Dates: start: 20171114
  3. TEDUGLUTIDE [Suspect]
     Active Substance: TEDUGLUTIDE
     Indication: Short-bowel syndrome
     Dosage: 2.2 MILLIGRAM
     Route: 058
     Dates: start: 20171114
  4. TEDUGLUTIDE [Suspect]
     Active Substance: TEDUGLUTIDE
     Indication: Short-bowel syndrome
     Dosage: 2.2 MILLIGRAM
     Route: 058
     Dates: start: 20171114
  5. FLUCONAZOLE [Concomitant]
     Active Substance: FLUCONAZOLE
     Indication: Candida infection
     Dosage: UNK
     Route: 065

REACTIONS (5)
  - Vascular device infection [Recovered/Resolved]
  - Device malfunction [Recovered/Resolved]
  - Splenomegaly [Not Recovered/Not Resolved]
  - Lymphadenopathy [Recovered/Resolved]
  - Cholelithiasis [Not Recovered/Not Resolved]

NARRATIVE: CASE EVENT DATE: 20180320
